FAERS Safety Report 11688454 (Version 2)
Quarter: 2015Q4

REPORT INFORMATION
  Report Type: Report from Study
  Country: US (occurrence: US)
  Receive Date: 20151101
  Receipt Date: 20151118
  Transmission Date: 20160304
  Serious: No
  Sender: FDA-Public Use
  Company Number: US-AMGEN-USASL2015111654

PATIENT
  Age: 54 Year
  Sex: Male

DRUGS (1)
  1. ENBREL [Suspect]
     Active Substance: ETANERCEPT
     Indication: PSORIASIS
     Dosage: 50 MG, 2 TIMES/WK
     Route: 065
     Dates: start: 2006

REACTIONS (13)
  - Aspartate aminotransferase increased [Unknown]
  - Arthralgia [Unknown]
  - Haemoglobin decreased [Unknown]
  - Prostatic specific antigen abnormal [Unknown]
  - Erythema [Unknown]
  - Pruritus [Recovering/Resolving]
  - Blood glucose abnormal [Unknown]
  - Psoriasis [Unknown]
  - Blood creatinine abnormal [Unknown]
  - Rash pustular [Unknown]
  - Skin exfoliation [Unknown]
  - Skin lesion [Unknown]
  - Mean cell haemoglobin concentration decreased [Unknown]

NARRATIVE: CASE EVENT DATE: 20150928
